FAERS Safety Report 7548657-0 (Version None)
Quarter: 2011Q2

REPORT INFORMATION
  Report Type: 
  Country: None (occurrence: None)
  Receive Date: 20110615
  Receipt Date: 20110531
  Transmission Date: 20111010
  Serious: No
  Sender: FDA-Public Use
  Company Number: US-B.I. PHARMACEUTICALS,INC./RIDGEFIELD-2011-BP-14321BP

PATIENT
  Age: 70 Year
  Sex: Male

DRUGS (7)
  1. SOTALOL HCL [Concomitant]
     Route: 048
  2. PRADAXA [Suspect]
     Indication: ATRIAL FIBRILLATION
     Dosage: 300 MG
     Route: 048
     Dates: start: 20101201
  3. FISH OIL [Concomitant]
     Indication: ANTICOAGULANT THERAPY
     Route: 048
  4. DIOVAN [Concomitant]
     Route: 048
  5. DIGOXIN [Concomitant]
     Route: 048
  6. FAMOTIDINE [Concomitant]
     Indication: DYSPEPSIA
     Route: 048
  7. LISINOPRIL [Concomitant]
     Indication: HYPERTENSION
     Route: 048

REACTIONS (4)
  - GINGIVAL BLEEDING [None]
  - NASAL CONGESTION [None]
  - HAEMOPTYSIS [None]
  - RECTAL HAEMORRHAGE [None]
